FAERS Safety Report 16548141 (Version 1)
Quarter: 2019Q3

REPORT INFORMATION
  Report Type: Spontaneous
  Country: US (occurrence: US)
  Receive Date: 20190709
  Receipt Date: 20190709
  Transmission Date: 20191004
  Serious: No
  Sender: FDA-Public Use
  Company Number: US-ASTELLAS-2019US009398

PATIENT
  Age: 82 Year
  Sex: Male

DRUGS (2)
  1. TOVIAZ [Suspect]
     Active Substance: FESOTERODINE FUMARATE
     Indication: RENAL DISORDER
     Route: 048
     Dates: start: 20190222
  2. MYRBETRIQ [Suspect]
     Active Substance: MIRABEGRON
     Indication: RENAL DISORDER
     Dosage: UNK, UNKNOWN FREQ.
     Route: 048

REACTIONS (2)
  - Dry mouth [Not Recovered/Not Resolved]
  - Drug ineffective [Unknown]

NARRATIVE: CASE EVENT DATE: 20190222
